FAERS Safety Report 5731502-3 (Version None)
Quarter: 2008Q2

REPORT INFORMATION
  Report Type: 
  Country: None (occurrence: None)
  Receive Date: 20080508
  Receipt Date: 20080427
  Transmission Date: 20081010
  Serious: Yes (Other)
  Sender: FDA-Public Use
  Company Number: PHEH2008US04117

PATIENT

DRUGS (1)
  1. FOCALIN XR [Suspect]
     Dosage: 5 MG, QD
     Route: 048

REACTIONS (1)
  - EXTRAPYRAMIDAL DISORDER [None]
